FAERS Safety Report 7176371-2 (Version None)
Quarter: 2010Q4

REPORT INFORMATION
  Report Type: 
  Country: None (occurrence: None)
  Receive Date: 20101220
  Receipt Date: 20100302
  Transmission Date: 20110411
  Serious: No
  Sender: FDA-Public Use
  Company Number: US-TYCO HEALTHCARE/MALLINCKRODT-T201000768

PATIENT
  Age: 76 Year
  Sex: Female

DRUGS (1)
  1. OPTIMARK [Suspect]
     Indication: NUCLEAR MAGNETIC RESONANCE IMAGING
     Dosage: 10 ML, SINGLE
     Route: 042
     Dates: start: 20100226, end: 20100226

REACTIONS (4)
  - DRUG ADMINISTRATION ERROR [None]
  - INFUSION SITE EXTRAVASATION [None]
  - INJECTION SITE PAIN [None]
  - OFF LABEL USE [None]
